FAERS Safety Report 7957758-4 (Version None)
Quarter: 2011Q4

REPORT INFORMATION
  Report Type: 
  Country: None (occurrence: None)
  Receive Date: 20111205
  Receipt Date: 20111202
  Transmission Date: 20120403
  Serious: Yes (Death, Other)
  Sender: FDA-Public Use
  Company Number: PHFR2011GB04571

PATIENT
  Sex: Male
  Weight: 86.1 kg

DRUGS (7)
  1. VALPROATE SODIUM [Concomitant]
     Dosage: 1200 MG/ DAY
  2. ATENOLOL [Concomitant]
     Dosage: 20 MG, UNK
  3. LEVOTHYROXINE SODIUM [Concomitant]
  4. CLONAZEPAM [Concomitant]
     Dosage: 500 UG/ DAY
  5. OMEPRAZOLE [Concomitant]
     Dosage: 20 MG/ DAY
  6. SENNA [Concomitant]
  7. CLOZARIL [Suspect]
     Indication: SCHIZOAFFECTIVE DISORDER
     Dosage: 300 MG/ DAY
     Route: 048
     Dates: start: 20041007

REACTIONS (7)
  - KIDNEY FIBROSIS [None]
  - PYELONEPHRITIS CHRONIC [None]
  - PERICARDITIS [None]
  - PULMONARY OEDEMA [None]
  - MALAISE [None]
  - PULMONARY CONGESTION [None]
  - LOWER RESPIRATORY TRACT INFECTION [None]
